FAERS Safety Report 6557504-5 (Version None)
Quarter: 2010Q1

REPORT INFORMATION
  Report Type: 
  Country: None (occurrence: None)
  Receive Date: 20100129
  Receipt Date: 20100118
  Transmission Date: 20100710
  Serious: Yes (Other)
  Sender: FDA-Public Use
  Company Number: IN-ROCHE-679857

PATIENT
  Age: 32 Year
  Sex: Male

DRUGS (4)
  1. MYCOPHENOLATE MOFETIL [Suspect]
     Route: 065
  2. VALPROATE SODIUM [Interacting]
     Route: 065
     Dates: start: 20060501
  3. PREDNISOLONE [Concomitant]
  4. TACROLIMUS [Concomitant]

REACTIONS (2)
  - DRUG INTERACTION [None]
  - TRANSPLANT REJECTION [None]
